FAERS Safety Report 6336250-7 (Version None)
Quarter: 2009Q3

REPORT INFORMATION
  Report Type: 
  Country: None (occurrence: None)
  Receive Date: 20090901
  Receipt Date: 20090820
  Transmission Date: 20100115
  Serious: Yes (Life-Threatening, Other)
  Sender: FDA-Public Use
  Company Number: GB-PFIZER INC-2009257207

PATIENT
  Age: 26 Year

DRUGS (2)
  1. CARBOPROST TROMETAMOL [Suspect]
     Indication: POSTPARTUM HAEMORRHAGE
     Dosage: 250 UG, ONE DOSE RECEIVED
     Route: 030
     Dates: start: 20090715, end: 20090715
  2. CITALOPRAM [Concomitant]
     Indication: DEPRESSION
     Dosage: 40 MG, UNK
     Route: 048

REACTIONS (6)
  - BODY TEMPERATURE INCREASED [None]
  - BRONCHOSPASM [None]
  - CONVULSION [None]
  - HEADACHE [None]
  - HYPERHIDROSIS [None]
  - WHITE BLOOD CELL COUNT INCREASED [None]
